FAERS Safety Report 5436045-2 (Version None)
Quarter: 2007Q3

REPORT INFORMATION
  Report Type: 
  Country: None (occurrence: None)
  Receive Date: 20070831
  Receipt Date: 20070823
  Transmission Date: 20080115
  Serious: Yes (Other)
  Sender: FDA-Public Use
  Company Number: B0485251A

PATIENT
  Age: 47 Year
  Sex: Female

DRUGS (2)
  1. ZYBAN [Suspect]
     Indication: PROPHYLAXIS
     Dates: end: 20070529
  2. REDUCTIL [Suspect]
     Indication: PROPHYLAXIS
     Dates: end: 20070529

REACTIONS (1)
  - PSYCHOTIC DISORDER [None]
